FAERS Safety Report 5752564-3 (Version None)
Quarter: 2008Q2

REPORT INFORMATION
  Report Type: 
  Country: None (occurrence: None)
  Receive Date: 20080529
  Receipt Date: 20080527
  Transmission Date: 20081010
  Serious: Yes (Other)
  Sender: FDA-Public Use
  Company Number: PHEH2008US04841

PATIENT
  Sex: Female

DRUGS (1)
  1. VIVELLE-DOT [Suspect]
     Dosage: 0.05 MG, QD
     Route: 062

REACTIONS (5)
  - DEPRESSION [None]
  - LIMB INJURY [None]
  - PAIN [None]
  - PHYSIOTHERAPY [None]
  - TENDONITIS [None]
